FAERS Safety Report 17817158 (Version 2)
Quarter: 2021Q1

REPORT INFORMATION
  Report Type: Spontaneous
  Country: US (occurrence: US)
  Receive Date: 20200522
  Receipt Date: 20210304
  Transmission Date: 20210419
  Serious: No
  Sender: FDA-Public Use
  Company Number: US-BAYER-2020-081709

PATIENT
  Age: 68 Year

DRUGS (1)
  1. BETASERON [Suspect]
     Active Substance: INTERFERON BETA-1B
     Dosage: UNK

REACTIONS (3)
  - Product dose omission issue [None]
  - Product availability issue [None]
  - Syringe issue [None]

NARRATIVE: CASE EVENT DATE: 20200506
